FAERS Safety Report 8246420-9 (Version None)
Quarter: 2012Q1

REPORT INFORMATION
  Report Type: 
  Country: None (occurrence: None)
  Receive Date: 20120330
  Receipt Date: 20120323
  Transmission Date: 20120608
  Serious: Yes (Other)
  Sender: FDA-Public Use
  Company Number: JP-VERTEX PHARMACEUTICALS INC.-AE-2012-001923

PATIENT
  Age: 34 Year
  Sex: Female

DRUGS (5)
  1. TELAVIC (TELAPREVIR) [Suspect]
     Indication: HEPATITIS C
     Route: 048
     Dates: start: 20111209, end: 20120118
  2. TELAVIC (TELAPREVIR) [Suspect]
     Route: 048
     Dates: start: 20120118, end: 20120228
  3. RIBAVIRIN [Concomitant]
     Indication: HEPATITIS C
     Route: 048
     Dates: start: 20111209, end: 20120214
  4. RIBAVIRIN [Concomitant]
     Route: 048
     Dates: start: 20120215
  5. PEGINTERFERON ALFA-2B [Concomitant]
     Indication: HEPATITIS C
     Route: 051
     Dates: start: 20111209

REACTIONS (6)
  - NEUTROPHIL COUNT DECREASED [None]
  - WHITE BLOOD CELL COUNT DECREASED [None]
  - HAEMOGLOBIN DECREASED [None]
  - VOMITING [None]
  - PLATELET COUNT DECREASED [None]
  - BLOOD URIC ACID INCREASED [None]
